FAERS Safety Report 11888667 (Version 1)
Quarter: 2016Q1

REPORT INFORMATION
  Report Type: Spontaneous
  Country: US (occurrence: US)
  Receive Date: 20160105
  Receipt Date: 20160105
  Transmission Date: 20160526
  Serious: No
  Sender: FDA-Public Use
  Company Number: US-JNJFOC-20151224635

PATIENT
  Sex: Female
  Weight: 52.62 kg

DRUGS (16)
  1. AMITRIPTYLINE [Concomitant]
     Active Substance: AMITRIPTYLINE
     Indication: ANTIDEPRESSANT THERAPY
     Route: 065
  2. PHENERGAN [Concomitant]
     Active Substance: PROMETHAZINE HYDROCHLORIDE
     Indication: NAUSEA
     Dosage: AS NEEDED
     Route: 065
  3. DURAGESIC [Suspect]
     Active Substance: FENTANYL
     Indication: PAIN
     Route: 062
  4. AMBIEN [Concomitant]
     Active Substance: ZOLPIDEM TARTRATE
     Indication: SLEEP DISORDER
     Route: 065
  5. IBUPROFEN. [Concomitant]
     Active Substance: IBUPROFEN
     Indication: PAIN
     Route: 065
  6. AMITIZA [Concomitant]
     Active Substance: LUBIPROSTONE
     Indication: UNEVALUABLE EVENT
     Dosage: EVERY NIGHT
     Route: 065
  7. NUCYNTA [Concomitant]
     Active Substance: TAPENTADOL HYDROCHLORIDE
     Indication: PAIN
     Route: 065
     Dates: start: 2015
  8. OMEPRAZOLE. [Concomitant]
     Active Substance: OMEPRAZOLE
     Indication: GASTROOESOPHAGEAL REFLUX DISEASE
     Route: 065
  9. ATORVASTATIN [Concomitant]
     Active Substance: ATORVASTATIN
     Indication: BLOOD CHOLESTEROL
     Route: 065
     Dates: start: 2015
  10. CARISOPRODOL. [Concomitant]
     Active Substance: CARISOPRODOL
     Indication: MUSCLE RELAXANT THERAPY
     Dosage: AS NEEDED
     Route: 065
  11. MEGESTROL [Concomitant]
     Active Substance: MEGESTROL
     Indication: DECREASED APPETITE
     Route: 065
     Dates: start: 2012
  12. AMITRIPTYLINE [Concomitant]
     Active Substance: AMITRIPTYLINE
     Indication: PAIN
     Route: 065
  13. ROPINIROLE. [Concomitant]
     Active Substance: ROPINIROLE
     Indication: RESTLESS LEGS SYNDROME
     Dosage: AS NECESSARY
     Route: 065
     Dates: start: 2013
  14. DULOXETINE. [Concomitant]
     Active Substance: DULOXETINE
     Indication: ANTIDEPRESSANT THERAPY
     Route: 065
     Dates: start: 2015
  15. AMITRIPTYLINE [Concomitant]
     Active Substance: AMITRIPTYLINE
     Indication: SLEEP DISORDER
     Route: 065
  16. METOPROLOL. [Concomitant]
     Active Substance: METOPROLOL
     Indication: BLOOD PRESSURE MEASUREMENT
     Dosage: AT BED NIGHT
     Route: 065

REACTIONS (12)
  - Osteoporosis [Unknown]
  - Drug dose omission [Unknown]
  - Adverse event [Unknown]
  - Drug withdrawal syndrome [Recovered/Resolved]
  - Hallucination, visual [Recovered/Resolved]
  - Visual impairment [Not Recovered/Not Resolved]
  - Drug screen negative [Unknown]
  - Hypermetabolism [Unknown]
  - Asthenia [Not Recovered/Not Resolved]
  - Body height increased [Recovered/Resolved]
  - Kyphosis [Unknown]
  - Drug screen negative [Unknown]

NARRATIVE: CASE EVENT DATE: 2015
